FAERS Safety Report 14169266 (Version 3)
Quarter: 2018Q1

REPORT INFORMATION
  Report Type: Spontaneous
  Country: CA (occurrence: CA)
  Receive Date: 20171107
  Receipt Date: 20180122
  Transmission Date: 20180508
  Serious: Yes (Other)
  Sender: FDA-Public Use
  Company Number: CA-SA-2017SA210708

PATIENT
  Age: 57 Year
  Sex: Female

DRUGS (4)
  1. LEFLUNOMIDE. [Suspect]
     Active Substance: LEFLUNOMIDE
     Route: 048
     Dates: start: 20121023, end: 20150626
  2. ENBREL [Suspect]
     Active Substance: ETANERCEPT
     Indication: RHEUMATOID ARTHRITIS
     Route: 065
  3. METHOTREXATE. [Suspect]
     Active Substance: METHOTREXATE
     Indication: RHEUMATOID ARTHRITIS
     Route: 065
     Dates: end: 20111117
  4. SULFASALAZINE. [Suspect]
     Active Substance: SULFASALAZINE
     Indication: RHEUMATOID ARTHRITIS
     Route: 065
     Dates: start: 20110915, end: 20110922

REACTIONS (11)
  - Weight decreased [Unknown]
  - Drug ineffective [Unknown]
  - Synovitis [Not Recovered/Not Resolved]
  - Depression [Unknown]
  - Lung neoplasm malignant [Unknown]
  - Gastrointestinal disorder [Unknown]
  - Osteoarthritis [Unknown]
  - Dyspepsia [Unknown]
  - Drug intolerance [Unknown]
  - Fibromyalgia [Unknown]
  - Rheumatoid arthritis [Unknown]
